FAERS Safety Report 11061507 (Version 2)
Quarter: 2015Q2

REPORT INFORMATION
  Report Type: Spontaneous
  Country: US (occurrence: None)
  Receive Date: 20150422
  Receipt Date: 20150610
  Transmission Date: 20150821
  Serious: Yes (Hospitalization, Other)
  Sender: FDA-Public Use
  Company Number: DSU-2014-116842

PATIENT
  Age: 69 Year
  Sex: Male

DRUGS (5)
  1. BENICAR HCT [Suspect]
     Active Substance: HYDROCHLOROTHIAZIDE\OLMESARTAN MEDOXOMIL
     Indication: PRODUCT USED FOR UNKNOWN INDICATION
     Route: 048
  2. FLOMAX/00889901/ (MORNIFLUMATE) [Concomitant]
  3. BENICAR [Suspect]
     Active Substance: OLMESARTAN MEDOXOMIL
     Indication: PRODUCT USED FOR UNKNOWN INDICATION
     Route: 048
     Dates: end: 2010
  4. NEXIUM/01479302/ (ESOMEPRAZOLE MAGNESIUM) [Concomitant]
  5. QUESTRAN (COLESTYRAMINE) [Concomitant]

REACTIONS (19)
  - Barrett^s oesophagus [None]
  - Weight decreased [None]
  - Malabsorption [None]
  - Thrombosis [None]
  - Fall [None]
  - Depression [None]
  - Haemorrhoids [None]
  - Pancreatic insufficiency [None]
  - Acute kidney injury [None]
  - Dysphonia [None]
  - Dysuria [None]
  - Dehydration [None]
  - Protein-losing gastroenteropathy [None]
  - Syncope [None]
  - Malnutrition [None]
  - Hypotension [None]
  - Gastrooesophageal reflux disease [None]
  - Drug administration error [None]
  - Insomnia [None]

NARRATIVE: CASE EVENT DATE: 2009
